FAERS Safety Report 25617598 (Version 1)
Quarter: 2025Q3

REPORT INFORMATION
  Report Type: Spontaneous
  Country: CN (occurrence: CN)
  Receive Date: 20250729
  Receipt Date: 20250729
  Transmission Date: 20251020
  Serious: Yes (Other)
  Sender: SANOFI AVENTIS
  Company Number: CN-SA-2025SA214294

PATIENT
  Age: 60 Year
  Sex: Female

DRUGS (6)
  1. OXALIPLATIN [Suspect]
     Active Substance: OXALIPLATIN
     Indication: Intestinal adenocarcinoma
     Dates: start: 20231102
  2. OXALIPLATIN [Suspect]
     Active Substance: OXALIPLATIN
     Indication: Colorectal adenoma
     Dates: start: 20240321
  3. OXALIPLATIN [Suspect]
     Active Substance: OXALIPLATIN
     Indication: Metastases to lymph nodes
  4. CAPECITABINE [Suspect]
     Active Substance: CAPECITABINE
     Indication: Intestinal adenocarcinoma
     Dosage: 1.5 G, BID, D1-14 Q3W
     Dates: start: 20231102, end: 202311
  5. CAPECITABINE [Suspect]
     Active Substance: CAPECITABINE
     Indication: Colorectal adenoma
     Dosage: UNK, BID 1G IN MORNING, 1.5 G IN EVENING, D1-14 Q3W
     Route: 048
     Dates: start: 202311, end: 202402
  6. CAPECITABINE [Suspect]
     Active Substance: CAPECITABINE
     Indication: Metastases to lymph nodes
     Dosage: UNK, BID, 1 G IN THE MORNING AND 1.5 G IN EVENING D1-D14 Q3W
     Dates: start: 20240321

REACTIONS (9)
  - Palmar-plantar erythrodysaesthesia syndrome [Recovering/Resolving]
  - Fatigue [Recovering/Resolving]
  - Hypoaesthesia [Recovering/Resolving]
  - Limb discomfort [Recovering/Resolving]
  - Dry skin [Recovering/Resolving]
  - Poor quality sleep [Recovering/Resolving]
  - Tongue discolouration [Recovering/Resolving]
  - Tongue coated [Recovering/Resolving]
  - Myelosuppression [Unknown]
